FAERS Safety Report 16523521 (Version 1)
Quarter: 2019Q3

REPORT INFORMATION
  Report Type: Report from Study
  Country: CO (occurrence: CO)
  Receive Date: 20190703
  Receipt Date: 20190703
  Transmission Date: 20191004
  Serious: Yes (Other)
  Sender: FDA-Public Use
  Company Number: CO-ROCHE-2346310

PATIENT
  Sex: Female
  Weight: 54 kg

DRUGS (1)
  1. XOLAIR [Suspect]
     Active Substance: OMALIZUMAB
     Indication: ASTHMA
     Dosage: 300 MG, QMO
     Route: 058
     Dates: start: 20181205, end: 20181205

REACTIONS (4)
  - Raynaud^s phenomenon [Unknown]
  - Arthralgia [Unknown]
  - Cyanosis [Unknown]
  - C-reactive protein increased [Unknown]
